FAERS Safety Report 8216264-2 (Version None)
Quarter: 2012Q1

REPORT INFORMATION
  Report Type: 
  Country: None (occurrence: None)
  Receive Date: 20120316
  Receipt Date: 20120312
  Transmission Date: 20120608
  Serious: Yes (Hospitalization)
  Sender: FDA-Public Use
  Company Number: PHHY2012TW018219

PATIENT
  Sex: Female
  Weight: 50 kg

DRUGS (2)
  1. ZOLEDRONOC ACID [Suspect]
     Indication: OSTEOPOROSIS
     Dosage: 5MG/ 100CC
     Route: 042
     Dates: start: 20110303
  2. ZOLEDRONOC ACID [Suspect]
     Dosage: 5MG/ 100CC
     Route: 042
     Dates: start: 20120227

REACTIONS (6)
  - PALPITATIONS [None]
  - CARDIAC FAILURE [None]
  - ATRIAL FIBRILLATION [None]
  - PLEURAL EFFUSION [None]
  - DYSPNOEA [None]
  - PULMONARY OEDEMA [None]
